FAERS Safety Report 20499511 (Version 5)
Quarter: 2022Q3

REPORT INFORMATION
  Report Type: Report from Study
  Country: BR (occurrence: BR)
  Receive Date: 20220222
  Receipt Date: 20220713
  Transmission Date: 20221027
  Serious: Yes (Hospitalization, Other)
  Sender: FDA-Public Use
  Company Number: BR-NOVARTISPH-NVSC2020BR317302

PATIENT
  Sex: Female
  Weight: 44 kg

DRUGS (4)
  1. COSENTYX [Suspect]
     Active Substance: SECUKINUMAB
     Indication: Ankylosing spondylitis
     Dosage: 150 MG (1 INJECTION) QMO
     Route: 058
     Dates: start: 20201117, end: 20211210
  2. COSENTYX [Suspect]
     Active Substance: SECUKINUMAB
     Indication: Spinal cord disorder
     Dosage: 300 MG, UNKNOWN, (2 INJECTIONS)
     Route: 065
     Dates: start: 20201222
  3. COSENTYX [Suspect]
     Active Substance: SECUKINUMAB
     Dosage: UNK
     Route: 065
  4. COSENTYX [Suspect]
     Active Substance: SECUKINUMAB
     Dosage: 150 MG, QMO (01 AMPOULE OF 150 MG, ABOUT 6 YEARS AGO)
     Route: 058

REACTIONS (37)
  - Headache [Recovered/Resolved]
  - Cluster headache [Recovered/Resolved]
  - Angina pectoris [Recovered/Resolved]
  - Angina pectoris [Not Recovered/Not Resolved]
  - Abdominal pain [Recovering/Resolving]
  - Toothache [Recovered/Resolved]
  - Restless legs syndrome [Not Recovered/Not Resolved]
  - Back pain [Not Recovered/Not Resolved]
  - Retching [Not Recovered/Not Resolved]
  - Constipation [Not Recovered/Not Resolved]
  - Herpes virus infection [Not Recovered/Not Resolved]
  - Blood cholesterol increased [Recovering/Resolving]
  - Decreased appetite [Not Recovered/Not Resolved]
  - Pain in extremity [Not Recovered/Not Resolved]
  - Vitamin D deficiency [Not Recovered/Not Resolved]
  - Diverticulitis [Recovering/Resolving]
  - Pain [Not Recovered/Not Resolved]
  - Weight decreased [Not Recovered/Not Resolved]
  - Condition aggravated [Unknown]
  - Diarrhoea [Not Recovered/Not Resolved]
  - Bone loss [Unknown]
  - Spinal pain [Not Recovered/Not Resolved]
  - Vomiting [Not Recovered/Not Resolved]
  - Gait disturbance [Recovering/Resolving]
  - Nervousness [Not Recovered/Not Resolved]
  - Ageusia [Not Recovered/Not Resolved]
  - Depression [Not Recovered/Not Resolved]
  - Insomnia [Not Recovered/Not Resolved]
  - Feeling abnormal [Not Recovered/Not Resolved]
  - Superficial vein thrombosis [Not Recovered/Not Resolved]
  - Peripheral swelling [Not Recovered/Not Resolved]
  - Arthralgia [Not Recovered/Not Resolved]
  - COVID-19 [Recovered/Resolved]
  - Phlebitis [Not Recovered/Not Resolved]
  - Blood pressure increased [Not Recovered/Not Resolved]
  - Product use in unapproved indication [Unknown]
  - Drug ineffective [Recovering/Resolving]

NARRATIVE: CASE EVENT DATE: 20200101
